FAERS Safety Report 5282611-7 (Version None)
Quarter: 2007Q1

REPORT INFORMATION
  Report Type: 
  Country: None (occurrence: None)
  Receive Date: 20070326
  Receipt Date: 20070313
  Transmission Date: 20070707
  Serious: Yes (Hospitalization)
  Sender: FDA-Public Use
  Company Number: 2006-08-1125

PATIENT
  Age: 67 Year
  Sex: Female
  Weight: 64.8644 kg

DRUGS (15)
  1. POSACONAZOLE [Suspect]
     Indication: SYSTEMIC MYCOSIS
     Dosage: 400 MG; BID
     Dates: start: 20060623, end: 20060820
  2. POSACONAZOLE [Suspect]
     Indication: SYSTEMIC MYCOSIS
     Dosage: 400 MG; BID
     Dates: start: 20060901
  3. CIPROFLOXACIN [Suspect]
     Dosage: 250 MG; BID
  4. ATENOLOL [Concomitant]
  5. AVANDIA [Concomitant]
  6. ASPIRIN [Concomitant]
  7. ALBUTEROL SULFATE [Concomitant]
  8. FISH OIL [Concomitant]
  9. GLYBURIDE [Concomitant]
  10. SYNTHROID [Concomitant]
  11. LIPITOR [Concomitant]
  12. LISINOPRIL [Concomitant]
  13. AMBIEN [Concomitant]
  14. ZOCOR [Concomitant]
  15. LACTOBACILLUS ACIDOPHILUS [Concomitant]

REACTIONS (16)
  - ATELECTASIS [None]
  - BLOOD ALBUMIN DECREASED [None]
  - BLOOD POTASSIUM DECREASED [None]
  - CARDIAC FAILURE CONGESTIVE [None]
  - CHRONIC OBSTRUCTIVE PULMONARY DISEASE [None]
  - CONDITION AGGRAVATED [None]
  - FIBRIN D DIMER INCREASED [None]
  - HAEMATOCRIT DECREASED [None]
  - HAEMOGLOBIN DECREASED [None]
  - INFLAMMATION [None]
  - MYOCARDIAL INFARCTION [None]
  - PLEURAL EFFUSION [None]
  - PULMONARY HYPERTENSION [None]
  - RASH MACULAR [None]
  - SINUS BRADYCARDIA [None]
  - URINARY TRACT INFECTION [None]
